FAERS Safety Report 16631033 (Version 2)
Quarter: 2024Q2

REPORT INFORMATION
  Report Type: Spontaneous
  Country: ES (occurrence: ES)
  Receive Date: 20190725
  Receipt Date: 20240527
  Transmission Date: 20240715
  Serious: Yes (Hospitalization, Other)
  Sender: FDA-Public Use
  Company Number: ES-AUROBINDO-AUR-APL-2019-043290

PATIENT
  Age: 57 Year
  Sex: Female

DRUGS (7)
  1. SERTRALINE [Interacting]
     Active Substance: SERTRALINE HYDROCHLORIDE
     Indication: Product used for unknown indication
     Dosage: 25 MILLIGRAM
     Route: 065
  2. LORMETAZEPAM [Interacting]
     Active Substance: LORMETAZEPAM
     Indication: Product used for unknown indication
     Dosage: 2 MILLIGRAM
     Route: 065
  3. HALOPERIDOL [Interacting]
     Active Substance: HALOPERIDOL
     Indication: Product used for unknown indication
     Dosage: 3 MILLIGRAM
     Route: 065
  4. HYDROXYZINE [Interacting]
     Active Substance: HYDROXYZINE HYDROCHLORIDE
     Indication: Product used for unknown indication
     Dosage: 50 MILLIGRAM
     Route: 065
  5. TRAZODONE [Interacting]
     Active Substance: TRAZODONE HYDROCHLORIDE
     Indication: Product used for unknown indication
     Dosage: 200 MILLIGRAM
     Route: 065
  6. PIMOZIDE [Interacting]
     Active Substance: PIMOZIDE
     Indication: Product used for unknown indication
     Dosage: 2 MILLIGRAM
     Route: 065
  7. SIMVASTATIN [Concomitant]
     Active Substance: SIMVASTATIN
     Indication: Product used for unknown indication
     Dosage: UNK
     Route: 065

REACTIONS (2)
  - Serotonin syndrome [Recovering/Resolving]
  - Drug interaction [Recovering/Resolving]
